FAERS Safety Report 22202401 (Version 3)
Quarter: 2023Q2

REPORT INFORMATION
  Report Type: Report from Study
  Country: US (occurrence: US)
  Receive Date: 20230412
  Receipt Date: 20230419
  Transmission Date: 20230722
  Serious: Yes (Hospitalization)
  Sender: FDA-Public Use
  Company Number: US-PFIZER INC-PV202300060772

PATIENT
  Age: 65 Year
  Sex: Female
  Weight: 84.5 kg

DRUGS (23)
  1. TALAZOPARIB [Suspect]
     Active Substance: TALAZOPARIB
     Indication: Acute myeloid leukaemia
     Dosage: ONE TIME EACH DATE FOR 21 DAYS
     Route: 048
     Dates: start: 20230322
  2. GEMTUZUMAB OZOGAMICIN [Suspect]
     Active Substance: GEMTUZUMAB OZOGAMICIN
     Indication: Acute myeloid leukaemia
     Dosage: ON DAYS 1, 4, 7
     Route: 042
     Dates: start: 20230322, end: 20230329
  3. TYLENOL WITH CODEINE [Concomitant]
     Active Substance: ACETAMINOPHEN\CODEINE PHOSPHATE
  4. ZOVIRAX [Concomitant]
     Active Substance: ACYCLOVIR
     Dosage: TAKE 1 TABLET (800 MG TOTAL) BY MOUTH IN THE MORNING AND 1 TABLET (800 MG TOTAL) BEFORE BEDTIME
     Route: 048
  5. ZOVIRAX [Concomitant]
     Active Substance: ACYCLOVIR
     Dosage: 400 UNK
     Route: 048
     Dates: start: 20210904, end: 20230330
  6. ALUMINUM MAGNESIUM HYDRATE [Concomitant]
     Indication: Stomatitis
     Dosage: SWISH AND SPIT BV MOUTH 2 TIMES DAILY PRN
  7. AMOXIL [Concomitant]
     Active Substance: AMOXICILLIN
     Dosage: UNK, DAILY
  8. PROZAC [Concomitant]
     Active Substance: FLUOXETINE HYDROCHLORIDE
     Dosage: 10 MG, 1X/DAY
     Route: 048
     Dates: start: 20230217
  9. SYNTHROID [Concomitant]
     Active Substance: LEVOTHYROXINE SODIUM
     Dosage: 75 UG, 1X/DAY
     Route: 048
  10. ZOFRAN [Concomitant]
     Active Substance: ONDANSETRON HYDROCHLORIDE
     Indication: Nausea
     Dosage: EVERY 8 HOURS IF NEEDED; FOR UP TO 7 DAYS
     Route: 048
  11. ZOFRAN [Concomitant]
     Active Substance: ONDANSETRON HYDROCHLORIDE
     Indication: Vomiting
     Dosage: 8 MG, EVERY 8 HOURS PRN
     Route: 048
  12. NOXAFIL [Concomitant]
     Active Substance: POSACONAZOLE
     Dosage: 300 MG, 1X/DAY
     Route: 048
     Dates: start: 20221110
  13. NOXAFIL [Concomitant]
     Active Substance: POSACONAZOLE
     Dosage: TAKE 2 TABLETS (200 MG TOTAL) BY MOUTH IN THE MORNING AND IN THE EVENING, RESPECTIVELY
     Route: 048
     Dates: start: 20220714, end: 20230330
  14. KLOR-CON M20 [Concomitant]
     Active Substance: POTASSIUM CHLORIDE
     Dosage: TABLET EXTENDED RELEASE, 40 MEQ, DAILY
  15. COMPAZINE [Concomitant]
     Active Substance: PROCHLORPERAZINE MALEATE
     Dosage: EVERY 6 HOURS AS NEEDED FOR UP TO 7 DAYS
     Route: 048
  16. COMPAZINE [Concomitant]
     Active Substance: PROCHLORPERAZINE MALEATE
     Dosage: 10 MG, EVERY 6 HOURS AS NEEDED FOR UP TO 7 DAYS
     Route: 048
     Dates: start: 20230329
  17. ULTRAM [Concomitant]
     Active Substance: TRAMADOL HYDROCHLORIDE
     Indication: Pain
     Dosage: 1 TABLET (50 MG TOTAL) BY MOUTH IN THE MORNING, AT NOON AND THEN IN THE EVENING
     Route: 048
  18. ULTRAM [Concomitant]
     Active Substance: TRAMADOL HYDROCHLORIDE
     Dosage: 1 TABLET (50 MG TOTAL) BY MOUTH IN THE MORNING, AT NOON AND THEN IN THE EVENING
     Route: 048
     Dates: start: 20220714, end: 20230330
  19. VITAMIN D3 [Concomitant]
     Active Substance: CHOLECALCIFEROL
     Dosage: 1000 IU, DAILY
     Route: 048
  20. AVELOX [Concomitant]
     Active Substance: MOXIFLOXACIN HYDROCHLORIDE
     Dosage: 400 MG, 1X/DAY
     Route: 048
     Dates: start: 20230321
  21. ASCORBIC ACID\IRON [Concomitant]
     Active Substance: ASCORBIC ACID\IRON
     Dosage: 1 TABLET, EVERY OTHER DAY
     Route: 048
     Dates: end: 20230330
  22. LEVAQUIN [Concomitant]
     Active Substance: LEVOFLOXACIN
     Dosage: 750 MG, 1X/DAY
     Route: 048
     Dates: start: 20220429, end: 20230330
  23. PERIDEX [CHLORHEXIDINE GLUCONATE] [Concomitant]
     Dosage: USE 15ML IN THE MOUTH OR THROAT IN THE MORNING AND 15 ML BEFORE BEDTIME
     Dates: start: 20230320

REACTIONS (2)
  - Gingival bleeding [Not Recovered/Not Resolved]
  - Febrile neutropenia [Not Recovered/Not Resolved]

NARRATIVE: CASE EVENT DATE: 20230330
